FAERS Safety Report 18854632 (Version 4)
Quarter: 2021Q1

REPORT INFORMATION
  Report Type: Report from Study
  Country: None (occurrence: US)
  Receive Date: 20210206
  Receipt Date: 20210323
  Transmission Date: 20210420
  Serious: Yes (Other)
  Sender: FDA-Public Use
  Company Number: US-ABBVIE-21K-163-3740567-00

PATIENT
  Age: 65 Year
  Sex: Male
  Weight: 90.8 kg

DRUGS (11)
  1. GAZYVA [Concomitant]
     Active Substance: OBINUTUZUMAB
     Indication: CHRONIC LYMPHOCYTIC LEUKAEMIA
     Route: 065
  2. VENCLEXTA [Suspect]
     Active Substance: VENETOCLAX
     Route: 048
     Dates: start: 20210125, end: 2021
  3. OBINUTUZUMAB. [Suspect]
     Active Substance: OBINUTUZUMAB
     Indication: CHRONIC LYMPHOCYTIC LEUKAEMIA
     Route: 065
  4. VENCLEXTA [Suspect]
     Active Substance: VENETOCLAX
     Route: 048
     Dates: start: 2021
  5. VENCLEXTA [Suspect]
     Active Substance: VENETOCLAX
     Indication: CHRONIC LYMPHOCYTIC LEUKAEMIA
     Route: 048
     Dates: start: 20210111, end: 20210117
  6. ALOPURINOL [Suspect]
     Active Substance: ALLOPURINOL
     Route: 048
  7. ALOPURINOL [Suspect]
     Active Substance: ALLOPURINOL
     Route: 065
  8. VENCLEXTA [Suspect]
     Active Substance: VENETOCLAX
     Route: 048
     Dates: start: 20210118, end: 20210124
  9. ALOPURINOL [Suspect]
     Active Substance: ALLOPURINOL
     Indication: PROPHYLAXIS
     Route: 065
  10. ALOPURINOL [Suspect]
     Active Substance: ALLOPURINOL
     Route: 065
  11. GAZYVA [Concomitant]
     Active Substance: OBINUTUZUMAB
     Indication: PRODUCT USED FOR UNKNOWN INDICATION

REACTIONS (17)
  - Abdominal neoplasm [Unknown]
  - Adverse food reaction [Unknown]
  - Fatigue [Not Recovered/Not Resolved]
  - Constipation [Not Recovered/Not Resolved]
  - Feeling hot [Recovering/Resolving]
  - Limb discomfort [Recovering/Resolving]
  - Neuropathy peripheral [Recovering/Resolving]
  - Dizziness [Not Recovered/Not Resolved]
  - Thirst [Recovering/Resolving]
  - Abdominal pain [Unknown]
  - Constipation [Recovered/Resolved]
  - Pain in extremity [Recovering/Resolving]
  - Feeling abnormal [Unknown]
  - Restless legs syndrome [Recovering/Resolving]
  - Middle insomnia [Not Recovered/Not Resolved]
  - Dehydration [Recovering/Resolving]
  - Urine output decreased [Unknown]

NARRATIVE: CASE EVENT DATE: 2021
